FAERS Safety Report 6830615-2 (Version None)
Quarter: 2010Q3

REPORT INFORMATION
  Report Type: 
  Country: None (occurrence: None)
  Receive Date: 20100712
  Receipt Date: 20100701
  Transmission Date: 20110219
  Serious: Yes (Hospitalization, Disabling)
  Sender: FDA-Public Use
  Company Number: FR-KINGPHARMUSA00001-K201000837

PATIENT
  Age: 67 Year
  Sex: Female

DRUGS (6)
  1. ALTACE [Suspect]
     Indication: HYPERTENSION
     Dosage: 5 MG, QD
     Route: 048
  2. STANGYL [Suspect]
     Indication: SLEEP DISORDER
     Dosage: 100 MG, QD
     Route: 048
     Dates: start: 20000101
  3. STANGYL [Suspect]
     Indication: DEPRESSION
  4. AMLODIPINE [Concomitant]
     Dosage: UNK
  5. TRAMADOL HCL [Concomitant]
     Dosage: UNK
  6. DULOXETINE HYDROCHLORIDE [Concomitant]
     Dosage: UNK

REACTIONS (4)
  - DRY MOUTH [None]
  - FIBROMYALGIA [None]
  - LIP PAIN [None]
  - SWOLLEN TONGUE [None]
